FAERS Safety Report 8231915-4 (Version None)
Quarter: 2012Q1

REPORT INFORMATION
  Report Type: 
  Country: None (occurrence: None)
  Receive Date: 20120323
  Receipt Date: 20120319
  Transmission Date: 20120608
  Serious: Yes (Other)
  Sender: FDA-Public Use
  Company Number: PHHY2012CA009915

PATIENT
  Sex: Male

DRUGS (18)
  1. BETNOVATE [Concomitant]
     Dosage: UNK UKN, DAILY
  2. OXYCET [Concomitant]
     Dosage: 1 DF, QID
  3. SERAX [Concomitant]
     Dosage: 15 MG, TID
  4. PANTOPRAZOLE SODIUM [Concomitant]
     Dosage: 40 MG, BID
     Route: 048
  5. CELEBREX [Concomitant]
     Dosage: 100 MG, 1 OR 2 DAILY
     Route: 048
  6. ZOLEDRONOC ACID [Suspect]
     Indication: OSTEOPOROSIS
     Dosage: UNK UKN, UNK
     Route: 042
     Dates: start: 20090415
  7. ZOLEDRONOC ACID [Suspect]
     Dosage: UNK UKN, UNK
     Route: 042
     Dates: start: 20100415
  8. NIZORAL [Concomitant]
     Dosage: UNK UKN, QD
  9. FUROSEMIDE [Concomitant]
     Dosage: 40 MG, QD
  10. AMITRIPTYLINE HCL [Concomitant]
     Dosage: 10 MG, 1-2 QHS
     Route: 048
  11. SYNTHROID [Concomitant]
     Dosage: 0.125 MG, DAILY
     Route: 048
  12. PENNSAID [Concomitant]
     Dosage: UNK UKN, UNK
  13. NORTRIPTYLINE HYDROCHLORIDE [Concomitant]
     Dosage: 10 MG, 1-2 QHS
     Route: 048
  14. DETROL [Suspect]
     Dosage: 2 MG, BID
     Route: 048
  15. ZOLEDRONOC ACID [Suspect]
     Dosage: UNK UKN, UNK
     Route: 042
     Dates: start: 20110414
  16. MOTILIUM [Concomitant]
     Dosage: 10 MG, UNK
  17. ARICEPT [Concomitant]
     Dosage: 5 MG, QHS
     Route: 048
  18. OXAZEPAM [Concomitant]
     Dosage: 15 MG, QHS
     Route: 048

REACTIONS (3)
  - ORAL PAIN [None]
  - OSTEONECROSIS OF JAW [None]
  - SENSITIVITY OF TEETH [None]
